FAERS Safety Report 9819793 (Version 3)
Quarter: 2014Q2

REPORT INFORMATION
  Report Type: Spontaneous
  Country: VN (occurrence: VN)
  Receive Date: 20140116
  Receipt Date: 20140414
  Transmission Date: 20141212
  Serious: Yes (Hospitalization)
  Sender: FDA-Public Use
  Company Number: VN-ROCHE-1331359

PATIENT
  Age: 53 Year
  Sex: Female
  Weight: 51 kg

DRUGS (2)
  1. HERCEPTIN [Suspect]
     Indication: HER-2 POSITIVE BREAST CANCER
     Route: 041
  2. PACLITAXEL [Concomitant]
     Indication: CHEMOTHERAPY
     Route: 041
     Dates: start: 201312

REACTIONS (3)
  - Transaminases increased [Recovered/Resolved]
  - Granulocytopenia [Recovered/Resolved]
  - Thrombocytopenia [Recovered/Resolved]
